FAERS Safety Report 4431823-0 (Version None)
Quarter: 2004Q3

REPORT INFORMATION
  Report Type: 
  Country: None (occurrence: None)
  Receive Date: 20040818
  Receipt Date: 20040806
  Transmission Date: 20050211
  Serious: Yes (Life-Threatening, Disabling)
  Sender: FDA-Public Use
  Company Number: HQWYE479016JUN04

PATIENT
  Age: 38 Year
  Sex: Female

DRUGS (2)
  1. EFFEXOR [Suspect]
     Indication: POSTPARTUM DEPRESSION
     Dosage: 75 MG 1X PER 1 DAY
     Route: 048
     Dates: start: 20040223, end: 20040606
  2. ZYBAN [Suspect]
     Indication: SMOKING CESSATION THERAPY
     Dosage: UNKNOWN DOSE TWO TIMES PER DAY
     Route: 048
     Dates: start: 20040522, end: 20040601

REACTIONS (10)
  - ACTIVITIES OF DAILY LIVING IMPAIRED [None]
  - CONVULSION [None]
  - DRUG INTERACTION [None]
  - DRUG WITHDRAWAL SYNDROME [None]
  - FLIGHT OF IDEAS [None]
  - IMPAIRED DRIVING ABILITY [None]
  - IRRITABILITY [None]
  - MEMORY IMPAIRMENT [None]
  - PETIT MAL EPILEPSY [None]
  - STATUS EPILEPTICUS [None]
